FAERS Safety Report 4297968-3 (Version None)
Quarter: 2004Q1

REPORT INFORMATION
  Report Type: 
  Country: None (occurrence: None)
  Receive Date: 20040218
  Receipt Date: 20001222
  Transmission Date: 20041129
  Serious: Yes (Other)
  Sender: FDA-Public Use
  Company Number: US-BRISTOL-MYERS SQUIBB COMPANY-10660165

PATIENT
  Age: 44 Year
  Sex: Female

DRUGS (4)
  1. STADOL [Suspect]
     Indication: MIGRAINE
     Route: 045
     Dates: start: 19920101, end: 20000831
  2. NUBAIN [Suspect]
  3. TALWIN [Suspect]
  4. SERZONE [Concomitant]

REACTIONS (3)
  - DEPENDENCE [None]
  - DYSTHYMIC DISORDER [None]
  - PERSONALITY DISORDER [None]
